FAERS Safety Report 4882097-8 (Version None)
Quarter: 2006Q1

REPORT INFORMATION
  Report Type: 
  Country: None (occurrence: None)
  Receive Date: 20060117
  Receipt Date: 20050603
  Transmission Date: 20060701
  Serious: Yes (Hospitalization, Disabling)
  Sender: FDA-Public Use
  Company Number: US-MERCK-0506USA00986

PATIENT
  Age: 56 Year
  Sex: Male
  Weight: 107 kg

DRUGS (10)
  1. VIOXX [Suspect]
     Indication: ARTHRITIS
     Route: 048
     Dates: start: 20010101, end: 20040404
  2. VIOXX [Suspect]
     Route: 048
     Dates: start: 20040405, end: 20040509
  3. LIPITOR [Concomitant]
     Indication: HYPERLIPIDAEMIA
     Route: 048
  4. ENALAPRIL MALEATE [Concomitant]
     Route: 048
  5. NAPROSYN [Concomitant]
     Route: 065
  6. ADVIL [Concomitant]
     Route: 065
  7. MOTRIN [Concomitant]
     Route: 065
  8. TYLENOL (CAPLET) [Concomitant]
     Route: 065
  9. ZOCOR [Concomitant]
     Route: 048
  10. VIAGRA [Concomitant]
     Indication: ERECTILE DYSFUNCTION
     Route: 065

REACTIONS (4)
  - CEREBROVASCULAR ACCIDENT [None]
  - DEEP VEIN THROMBOSIS [None]
  - DEPRESSION [None]
  - ISCHAEMIC STROKE [None]
